FAERS Safety Report 8850902 (Version 3)
Quarter: 2013Q1

REPORT INFORMATION
  Report Type: Spontaneous
  Country: US (occurrence: US)
  Receive Date: 20121019
  Receipt Date: 20130222
  Transmission Date: 20140127
  Serious: Yes (Death)
  Sender: FDA-Public Use
  Company Number: US-PFIZER INC-2012257758

PATIENT
  Age: 54 Year
  Sex: Female
  Weight: 70.3 kg

DRUGS (14)
  1. SUTENT [Suspect]
     Indication: RENAL CELL CARCINOMA
     Dosage: CYCLIC
  2. SUTENT [Suspect]
     Indication: RENAL CANCER
     Dosage: 50 MG, 1X/DAY
     Dates: start: 20120906
  3. PRILOSEC [Concomitant]
     Indication: GASTROOESOPHAGEAL REFLUX DISEASE
     Dosage: UNK
  4. REGLAN [Concomitant]
     Dosage: 10 MG, 3X/DAY BEFORE MEALS
  5. PROMETHAZINE HYDROCHLORIDE [Concomitant]
     Indication: NAUSEA
     Dosage: 25 MG, UNK
  6. ZOFRAN [Concomitant]
     Indication: NAUSEA
     Dosage: 4 MG, AS NEEDED
     Dates: start: 20121008
  7. SIMVASTATIN [Concomitant]
     Dosage: UNK
  8. LOPRESSOR [Concomitant]
     Dosage: UNK
  9. FISH OIL [Concomitant]
     Dosage: UNK
  10. ASPIRIN [Concomitant]
     Dosage: 81 MG, UNK
  11. SYNTHROID [Concomitant]
     Dosage: 137 UG, UNK
  12. FENTANYL [Concomitant]
     Dosage: 50 UG, UNK
     Route: 061
  13. PERCOCET [Concomitant]
     Indication: BACK PAIN
     Dosage: 5/325 AS NEEDED
  14. ATIVAN [Concomitant]
     Indication: SLEEP DISORDER
     Dosage: 0.5 MG, AS NEEDED

REACTIONS (12)
  - Death [Fatal]
  - Nausea [Unknown]
  - Fatigue [Unknown]
  - Asthenia [Unknown]
  - Hypersomnia [Unknown]
  - Vomiting [Unknown]
  - Malaise [Unknown]
  - Stomatitis [Unknown]
  - Oral pain [Unknown]
  - Decreased appetite [Unknown]
  - Fatigue [Unknown]
  - Dysstasia [Unknown]
